FAERS Safety Report 8513823-4 (Version None)
Quarter: 2012Q3

REPORT INFORMATION
  Report Type: 
  Country: None (occurrence: None)
  Receive Date: 20120717
  Receipt Date: 20120712
  Transmission Date: 20120928
  Serious: Yes (Other)
  Sender: FDA-Public Use
  Company Number: DE-BAYER-2012-069885

PATIENT
  Sex: Male

DRUGS (1)
  1. AVELOX [Suspect]
     Indication: LOCALISED INFECTION
     Dosage: UNK
     Route: 048

REACTIONS (5)
  - SEPSIS SYNDROME [None]
  - ENDOTOXIC SHOCK [None]
  - ENDOCRINE DISORDER [None]
  - SEPSIS [None]
  - RENAL IMPAIRMENT [None]
